FAERS Safety Report 5346175-1 (Version None)
Quarter: 2007Q2

REPORT INFORMATION
  Report Type: 
  Country: None (occurrence: None)
  Receive Date: 20070605
  Receipt Date: 20070525
  Transmission Date: 20071010
  Serious: Yes (Other)
  Sender: FDA-Public Use
  Company Number: US-JNJFOC-20070401165

PATIENT
  Sex: Female

DRUGS (1)
  1. INVEGA [Suspect]
     Indication: DELUSION
     Route: 048

REACTIONS (3)
  - CONVULSION [None]
  - GAIT DISTURBANCE [None]
  - SEDATION [None]
